FAERS Safety Report 8954248 (Version 2)
Quarter: 2012Q4

REPORT INFORMATION
  Report Type: 
  Country: US (occurrence: US)
  Receive Date: 20121207
  Receipt Date: 20121227
  Transmission Date: 20130627
  Serious: Yes (Other)
  Sender: FDA-Public Use
  Company Number: US-PFIZER INC-2012307118

PATIENT
  Age: 60 Year
  Sex: Female
  Weight: 95.15 kg

DRUGS (7)
  1. NEURONTIN [Suspect]
     Indication: PAIN
     Dosage: 300mg two capsules at bed for first three days
     Route: 048
  2. NEURONTIN [Suspect]
     Indication: SHINGLES
     Dosage: 300mg three capsules for next three days
     Route: 048
     Dates: end: 2012
  3. NEURONTIN [Suspect]
     Dosage: 300mg four capsules at bed time as per the dose titration
  4. LANTUS [Concomitant]
     Indication: DIABETES
     Dosage: 50 Units, 2x/day
  5. HUMALOG [Concomitant]
     Indication: DIABETES
     Dosage: UNK
  6. HYDROCHLOROTHIAZIDE [Concomitant]
     Indication: SWELLING OF LEGS
     Dosage: 25 mg, 1x/day
  7. BENICAR [Concomitant]
     Indication: BLOOD PRESSURE HIGH
     Dosage: UNK

REACTIONS (1)
  - Glycosylated haemoglobin increased [Unknown]
